FAERS Safety Report 5225498-0 (Version None)
Quarter: 2007Q1

REPORT INFORMATION
  Report Type: 
  Country: None (occurrence: None)
  Receive Date: 20070131
  Receipt Date: 20070124
  Transmission Date: 20070707
  Serious: Yes (Hospitalization)
  Sender: FDA-Public Use
  Company Number: AT-PFIZER INC-2007004734

PATIENT
  Age: 45 Year
  Sex: Male

DRUGS (5)
  1. TRESLEEN [Suspect]
     Route: 048
     Dates: start: 20061030, end: 20061115
  2. IVADAL [Suspect]
     Dosage: DAILY DOSE:20MG
  3. MARCUMAR [Suspect]
     Dosage: TEXT:3-4.5MG
  4. SIMVASTATIN [Concomitant]
     Dosage: DAILY DOSE:20MG
  5. INSULATARD NPH HUMAN [Concomitant]

REACTIONS (1)
  - INTERNATIONAL NORMALISED RATIO DECREASED [None]
